FAERS Safety Report 14994812 (Version 1)
Quarter: 2018Q2

REPORT INFORMATION
  Report Type: Spontaneous
  Country: US (occurrence: US)
  Receive Date: 20180611
  Receipt Date: 20180611
  Transmission Date: 20180711
  Serious: No
  Sender: FDA-Public Use
  Company Number: US-PFIZER INC-2018235195

PATIENT
  Sex: Female

DRUGS (1)
  1. MILRINONE [Suspect]
     Active Substance: MILRINONE
     Indication: CARDIOVASCULAR DISORDER
     Dosage: UNK

REACTIONS (3)
  - Incontinence [Unknown]
  - Parosmia [Unknown]
  - Urinary tract infection [Unknown]
